FAERS Safety Report 15464401 (Version 1)
Quarter: 2018Q4

REPORT INFORMATION
  Report Type: Spontaneous
  Country: FR (occurrence: FR)
  Receive Date: 20181004
  Receipt Date: 20181004
  Transmission Date: 20190204
  Serious: Yes (Death)
  Sender: FDA-Public Use
  Company Number: FR-B.I. PHARMACEUTICALS,INC./RIDGEFIELD-2018-12-002370

PATIENT
  Age: 79 Year
  Sex: Male

DRUGS (4)
  1. SOTALOL. [Suspect]
     Active Substance: SOTALOL
     Indication: ACUTE CORONARY SYNDROME
     Route: 048
     Dates: end: 20180623
  2. PRADAXA [Suspect]
     Active Substance: DABIGATRAN ETEXILATE MESYLATE
     Indication: ACUTE CORONARY SYNDROME
     Route: 048
     Dates: start: 20180409, end: 20180623
  3. LIPTRUZET [Suspect]
     Active Substance: ATORVASTATIN CALCIUM\EZETIMIBE
     Indication: ACUTE CORONARY SYNDROME
     Dosage: STRENGHT-10 MG/80 MG
     Route: 048
     Dates: end: 20180623
  4. COVERSYL [Suspect]
     Active Substance: PERINDOPRIL
     Indication: ACUTE CORONARY SYNDROME
     Route: 048
     Dates: end: 20180623

REACTIONS (1)
  - Cerebral haemorrhage [Fatal]

NARRATIVE: CASE EVENT DATE: 20180623
